FAERS Safety Report 12507962 (Version 1)
Quarter: 2016Q2

REPORT INFORMATION
  Report Type: Spontaneous
  Country: IL (occurrence: IL)
  Receive Date: 20160629
  Receipt Date: 20160629
  Transmission Date: 20160815
  Serious: Yes (Hospitalization)
  Sender: FDA-Public Use
  Company Number: IL-NOVOPROD-497517

PATIENT
  Age: 3 Week
  Sex: Male

DRUGS (2)
  1. LEVEMIR [Suspect]
     Active Substance: INSULIN DETEMIR
     Indication: DIABETES MELLITUS
     Dosage: 20 IU
     Route: 064
     Dates: start: 20150719
  2. NOVORAPID [Suspect]
     Active Substance: INSULIN ASPART
     Indication: DIABETES MELLITUS
     Dosage: 10 U, QD
     Route: 064
     Dates: start: 20150721, end: 20150908

REACTIONS (2)
  - Foetal exposure during pregnancy [Recovered/Resolved]
  - Fever neonatal [Recovered/Resolved]

NARRATIVE: CASE EVENT DATE: 20150719
